FAERS Safety Report 9168846 (Version 5)
Quarter: 2014Q1

REPORT INFORMATION
  Report Type: Spontaneous
  Country: US (occurrence: US)
  Receive Date: 20130318
  Receipt Date: 20140203
  Transmission Date: 20141002
  Serious: Yes (Hospitalization, Other)
  Sender: FDA-Public Use
  Company Number: US-009507513-1303USA007490

PATIENT
  Sex: Female

DRUGS (1)
  1. FOSAMAX [Suspect]
     Indication: OSTEOPOROSIS
     Dosage: 70 MG, UNK
     Route: 048
     Dates: start: 200102, end: 201012

REACTIONS (31)
  - Hip fracture [Unknown]
  - Internal fixation of fracture [Unknown]
  - Cholecystectomy [Unknown]
  - Breast cancer [Unknown]
  - Pelvic fracture [Unknown]
  - Fractured coccyx [Unknown]
  - Wrist surgery [Unknown]
  - Open reduction of fracture [Unknown]
  - Meningitis [Unknown]
  - Low turnover osteopathy [Unknown]
  - Wrist fracture [Unknown]
  - Fall [Unknown]
  - Radiotherapy [Unknown]
  - Tonsillectomy [Unknown]
  - Appendicectomy [Unknown]
  - Confusional state [Unknown]
  - Bone disorder [Unknown]
  - Chronic obstructive pulmonary disease [Not Recovered/Not Resolved]
  - Diverticulum [Unknown]
  - Arthritis [Unknown]
  - Anaemia [Unknown]
  - Hypertension [Unknown]
  - Blood cholesterol increased [Unknown]
  - Breast lump removal [Unknown]
  - Dehydration [Unknown]
  - Leukocytosis [Unknown]
  - Fall [Unknown]
  - Bursitis [Recovered/Resolved]
  - Contusion [Unknown]
  - Osteoarthritis [Unknown]
  - Bursitis [Recovering/Resolving]
